FAERS Safety Report 10456440 (Version 1)
Quarter: 2014Q3

REPORT INFORMATION
  Report Type: Report from Study
  Country: US (occurrence: US)
  Receive Date: 20140916
  Receipt Date: 20140916
  Transmission Date: 20150326
  Serious: Yes (Other)
  Sender: FDA-Public Use
  Company Number: US-SA-2014SA124882

PATIENT

DRUGS (4)
  1. METHOTREXATE [Concomitant]
     Active Substance: METHOTREXATE
     Indication: PROPHYLAXIS AGAINST GRAFT VERSUS HOST DISEASE
  2. MYCOPHENOLATE MOFETIL. [Concomitant]
     Active Substance: MYCOPHENOLATE MOFETIL
     Indication: PROPHYLAXIS AGAINST GRAFT VERSUS HOST DISEASE
  3. CLOFARABINE [Suspect]
     Active Substance: CLOFARABINE
     Indication: BONE MARROW CONDITIONING REGIMEN
     Dosage: DAYS -6 TO -2
     Route: 042
  4. BUSULFAN [Suspect]
     Active Substance: BUSULFAN
     Indication: BONE MARROW CONDITIONING REGIMEN
     Dosage: DAYS -5 TO -2
     Route: 042

REACTIONS (9)
  - Pneumonia [Unknown]
  - Venoocclusive disease [Unknown]
  - Sepsis [Unknown]
  - Pulmonary alveolar haemorrhage [Unknown]
  - Acute graft versus host disease [Unknown]
  - Ascites [Unknown]
  - Infection [Unknown]
  - Metabolic acidosis [Unknown]
  - Neutropenic colitis [Unknown]
